FAERS Safety Report 4552110-6 (Version None)
Quarter: 2005Q1

REPORT INFORMATION
  Report Type: 
  Country: None (occurrence: None)
  Receive Date: 20050112
  Receipt Date: 20041229
  Transmission Date: 20050727
  Serious: Yes (Hospitalization, Other)
  Sender: FDA-Public Use
  Company Number: USA041287141

PATIENT
  Age: 7 Year
  Sex: Male
  Weight: 27 kg

DRUGS (3)
  1. STRATTERA [Suspect]
     Indication: ATTENTION DEFICIT/HYPERACTIVITY DISORDER
     Dosage: 20 MG DAY
     Dates: start: 20041010, end: 20041109
  2. ULTRASE (PANCRELIPASE) [Concomitant]
  3. ADEK [Concomitant]

REACTIONS (4)
  - ABDOMINAL PAIN UPPER [None]
  - HEPATIC CIRRHOSIS [None]
  - INTUSSUSCEPTION [None]
  - LIVER DISORDER [None]
